FAERS Safety Report 6501824-7 (Version None)
Quarter: 2009Q4

REPORT INFORMATION
  Report Type: 
  Country: None (occurrence: None)
  Receive Date: 20091216
  Receipt Date: 20091216
  Transmission Date: 20100525
  Serious: Yes (Hospitalization)
  Sender: FDA-Public Use
  Company Number: US-PFIZER INC-2009281806

PATIENT
  Age: 65 Year
  Sex: Male

DRUGS (1)
  1. LYRICA [Suspect]
     Indication: PAIN
     Dosage: 300 MG IN THE MORNING, 600 MG AT NIGHT

REACTIONS (3)
  - ATAXIA [None]
  - GAIT DISTURBANCE [None]
  - MENTAL STATUS CHANGES [None]
